FAERS Safety Report 19179080 (Version 1)
Quarter: 2021Q2

REPORT INFORMATION
  Report Type: Spontaneous
  Country: US (occurrence: US)
  Receive Date: 20210423
  Receipt Date: 20210423
  Transmission Date: 20210717
  Serious: Yes (Life-Threatening, Hospitalization)
  Sender: FDA-Public Use
  Company Number: None

PATIENT
  Age: 67 Year
  Sex: Male
  Weight: 89 kg

DRUGS (1)
  1. PACLITAXEL. [Suspect]
     Active Substance: PACLITAXEL
     Indication: LUNG CARCINOMA CELL TYPE UNSPECIFIED STAGE III
     Dates: start: 20210422, end: 20210422

REACTIONS (3)
  - Pulseless electrical activity [None]
  - Infusion related reaction [None]
  - Cardiac arrest [None]

NARRATIVE: CASE EVENT DATE: 20210422
